FAERS Safety Report 25524036 (Version 1)
Quarter: 2025Q3

REPORT INFORMATION
  Report Type: Spontaneous
  Country: US (occurrence: None)
  Receive Date: 20250703
  Receipt Date: 20250703
  Transmission Date: 20251021
  Serious: No
  Sender: FDA-CTU
  Company Number: None

PATIENT
  Age: 48 Year
  Sex: Female
  Weight: 73.8 kg

DRUGS (1)
  1. NAPROXEN [Suspect]
     Active Substance: NAPROXEN
     Indication: Pain in extremity
     Route: 048
     Dates: start: 20250501, end: 20250506

REACTIONS (1)
  - Palpitations [None]

NARRATIVE: CASE EVENT DATE: 20250506
